FAERS Safety Report 20809650 (Version 1)
Quarter: 2022Q2

REPORT INFORMATION
  Report Type: Spontaneous
  Country: US (occurrence: US)
  Receive Date: 20220510
  Receipt Date: 20220510
  Transmission Date: 20220721
  Serious: No
  Sender: FDA-Public Use
  Company Number: US-TAKEDA-TPA2013A03148

PATIENT
  Age: 72 Year
  Sex: Male
  Weight: 87 kg

DRUGS (11)
  1. DEXILANT [Suspect]
     Active Substance: DEXLANSOPRAZOLE
     Indication: Gastrooesophageal reflux disease
     Dosage: 60 MILLIGRAM, QD
     Route: 048
     Dates: start: 20130325
  2. DEXILANT [Suspect]
     Active Substance: DEXLANSOPRAZOLE
     Indication: Barrett^s oesophagus
     Dosage: 60 MILLIGRAM
     Route: 065
     Dates: start: 20220503
  3. DEXLANSOPRAZOLE [Suspect]
     Active Substance: DEXLANSOPRAZOLE
     Indication: Gastrooesophageal reflux disease
     Dosage: 60 MILLIGRAM, QD
     Route: 048
     Dates: start: 20220420, end: 20220428
  4. DEXLANSOPRAZOLE [Suspect]
     Active Substance: DEXLANSOPRAZOLE
     Indication: Barrett^s oesophagus
  5. ALEVE [Concomitant]
     Active Substance: NAPROXEN SODIUM
     Indication: Pain
     Dosage: UNK UNK, BID
     Route: 048
  6. FISH OIL [Concomitant]
     Active Substance: FISH OIL
     Indication: Nutritional supplementation
     Dosage: UNK UNK, BID
     Route: 048
  7. VITAMINS [Concomitant]
     Active Substance: VITAMINS
     Indication: Nutritional supplementation
     Dosage: UNK UNK, QD
     Route: 048
  8. PROBIOTICS NOS [Concomitant]
     Active Substance: PROBIOTICS NOS
     Indication: Nutritional supplementation
     Dosage: UNK UNK, QD
     Route: 048
  9. CELECOXIB [Concomitant]
     Active Substance: CELECOXIB
     Indication: Arthritis
     Dosage: 200 MILLIGRAM, QD
     Route: 048
  10. OXYBUTYNIN [Concomitant]
     Active Substance: OXYBUTYNIN
     Indication: Bladder spasm
     Dosage: 5 MILLIGRAM, QD
     Route: 048
  11. DULCOLAX NOS [Concomitant]
     Active Substance: BISACODYL OR DOCUSATE SODIUM
     Indication: Constipation prophylaxis
     Dosage: UNK UNK, QD
     Route: 048

REACTIONS (5)
  - Ill-defined disorder [Not Recovered/Not Resolved]
  - Off label use [Unknown]
  - Hepatic enzyme increased [Not Recovered/Not Resolved]
  - Abdominal pain lower [Recovered/Resolved]
  - Defaecation urgency [Recovered/Resolved]

NARRATIVE: CASE EVENT DATE: 20130325
